FAERS Safety Report 7512098-2 (Version None)
Quarter: 2011Q2

REPORT INFORMATION
  Report Type: 
  Country: None (occurrence: None)
  Receive Date: 20110531
  Receipt Date: 20110525
  Transmission Date: 20111010
  Serious: Yes (Other)
  Sender: FDA-Public Use
  Company Number: BR-SANOFI-AVENTIS-2011SA033394

PATIENT
  Age: 26 Year
  Sex: Female

DRUGS (3)
  1. ENOXAPARIN SODIUM [Suspect]
     Route: 058
     Dates: start: 20110201
  2. ALL OTHER THERAPEUTIC PRODUCTS [Concomitant]
     Indication: UTERINE DISORDER
     Route: 067
     Dates: start: 20110401
  3. VITAMINS NOS [Concomitant]
     Indication: VITAMIN SUPPLEMENTATION
     Route: 048
     Dates: start: 20110301

REACTIONS (4)
  - BLOOD PRESSURE DECREASED [None]
  - INJECTION SITE PAIN [None]
  - PREMATURE SEPARATION OF PLACENTA [None]
  - DRUG EXPOSURE DURING PREGNANCY [None]
